FAERS Safety Report 4911234-1 (Version None)
Quarter: 2006Q1

REPORT INFORMATION
  Report Type: 
  Country: None (occurrence: None)
  Receive Date: 20060209
  Receipt Date: 20060125
  Transmission Date: 20060701
  Serious: Yes (Death, Hospitalization)
  Sender: FDA-Public Use
  Company Number: 2005-01551

PATIENT
  Age: 56 Year
  Sex: Male

DRUGS (3)
  1. VELCADE [Suspect]
     Indication: MULTIPLE MYELOMA
     Dosage: 1.30 MG/M2, UNK; INTRAVENOUS; 1.00 MG/M2; UNK, INTRAVENOUS
     Route: 042
     Dates: start: 20050214, end: 20050508
  2. VELCADE [Suspect]
     Indication: MULTIPLE MYELOMA
     Dosage: 1.30 MG/M2, UNK; INTRAVENOUS; 1.00 MG/M2; UNK, INTRAVENOUS
     Route: 042
     Dates: start: 20050509, end: 20050707
  3. DEXAMETHASONE [Suspect]
     Indication: MULTIPLE MYELOMA
     Dosage: 20.00 MG, UNK; ORAL
     Route: 048
     Dates: start: 20050510, end: 20050708

REACTIONS (23)
  - BLOOD BILIRUBIN INCREASED [None]
  - BLOOD CREATININE DECREASED [None]
  - BLOOD POTASSIUM INCREASED [None]
  - BLOOD SODIUM DECREASED [None]
  - CHEST PAIN [None]
  - CRUSH INJURY [None]
  - DISEASE PROGRESSION [None]
  - DIVERTICULUM INTESTINAL HAEMORRHAGIC [None]
  - GENERAL PHYSICAL HEALTH DETERIORATION [None]
  - HAEMOGLOBIN INCREASED [None]
  - HAEMOPTYSIS [None]
  - LOWER RESPIRATORY TRACT INFECTION [None]
  - MULTIPLE MYELOMA [None]
  - NEUROPATHY PERIPHERAL [None]
  - PAIN IN EXTREMITY [None]
  - PATHOLOGICAL FRACTURE [None]
  - PROTEIN TOTAL INCREASED [None]
  - RENAL IMPAIRMENT [None]
  - SPINAL COLUMN STENOSIS [None]
  - SPINAL CORD DISORDER [None]
  - THORACIC VERTEBRAL FRACTURE [None]
  - THROMBOCYTOPENIA [None]
  - URINARY RETENTION [None]
